FAERS Safety Report 7095531-2 (Version None)
Quarter: 2010Q4

REPORT INFORMATION
  Report Type: 
  Country: None (occurrence: None)
  Receive Date: 20101111
  Receipt Date: 20101108
  Transmission Date: 20110411
  Serious: Yes (Death, Other)
  Sender: FDA-Public Use
  Company Number: CN-BRACCO-000189

PATIENT
  Age: 60 Year
  Sex: Male

DRUGS (3)
  1. IOPAMIDOL [Suspect]
     Indication: PERCUTANEOUS CORONARY INTERVENTION
     Route: 013
     Dates: start: 20101014, end: 20101014
  2. IOPAMIDOL [Suspect]
     Indication: CORONARY ARTERY OCCLUSION
     Route: 013
     Dates: start: 20101014, end: 20101014
  3. ULTRAVIST 370 [Suspect]
     Indication: PERCUTANEOUS CORONARY INTERVENTION
     Route: 013
     Dates: start: 20101015, end: 20101015

REACTIONS (2)
  - DEATH [None]
  - SHOCK [None]
